FAERS Safety Report 5282773-1 (Version None)
Quarter: 2007Q2

REPORT INFORMATION
  Report Type: 
  Country: None (occurrence: None)
  Receive Date: 20070402
  Receipt Date: 20070319
  Transmission Date: 20071010
  Serious: Yes (Death, Hospitalization)
  Sender: FDA-Public Use
  Company Number: CA-JNJFOC-20070105520

PATIENT
  Sex: Female
  Weight: 44.6 kg

DRUGS (6)
  1. REMICADE [Suspect]
     Route: 042
  2. REMICADE [Suspect]
     Indication: CROHN'S DISEASE
     Route: 042
  3. PREDNISONE [Concomitant]
     Indication: CROHN'S DISEASE
     Route: 048
  4. LOSEC [Concomitant]
     Indication: CROHN'S DISEASE
     Route: 048
  5. PENTASA [Concomitant]
     Indication: CROHN'S DISEASE
     Route: 048
  6. FOSAMAX [Concomitant]
     Indication: OSTEOPOROSIS
     Route: 048

REACTIONS (13)
  - BLOOD PRESSURE INCREASED [None]
  - CROHN'S DISEASE [None]
  - DEHYDRATION [None]
  - GASTROINTESTINAL STOMA COMPLICATION [None]
  - HYPOKALAEMIA [None]
  - HYPOMAGNESAEMIA [None]
  - INTESTINAL FISTULA [None]
  - INTESTINAL HAEMORRHAGE [None]
  - LARGE INTESTINAL OBSTRUCTION [None]
  - MUSCLE SPASMS [None]
  - SHORT-BOWEL SYNDROME [None]
  - SMALL INTESTINAL OBSTRUCTION [None]
  - VOLVULUS [None]
